FAERS Safety Report 4437755-6 (Version None)
Quarter: 2004Q3

REPORT INFORMATION
  Report Type: 
  Country: None (occurrence: None)
  Receive Date: 20040830
  Receipt Date: 20040830
  Transmission Date: 20050211
  Serious: Yes (Hospitalization, Other)
  Sender: FDA-Public Use
  Company Number: None

PATIENT
  Age: 65 Year
  Sex: Male
  Weight: 68.9467 kg

DRUGS (3)
  1. ULTRACET [Suspect]
     Indication: ARTHRALGIA
     Dosage: 1          6 HRS ORAL
     Route: 048
     Dates: start: 20030226, end: 20030428
  2. TRAMADOL 50 MG GENERIC [Suspect]
     Indication: ARTHRALGIA
     Dosage: 1           6 HRS ORAL
     Route: 048
     Dates: start: 20040806, end: 20040825
  3. BEXTRA [Concomitant]

REACTIONS (14)
  - ANOREXIA [None]
  - ANXIETY [None]
  - CHEST PAIN [None]
  - DEPRESSION [None]
  - DIARRHOEA [None]
  - DRUG WITHDRAWAL SYNDROME [None]
  - GASTRITIS [None]
  - GASTROINTESTINAL DISORDER [None]
  - MIGRAINE [None]
  - NAUSEA [None]
  - PANIC ATTACK [None]
  - SNEEZING [None]
  - TINNITUS [None]
  - YAWNING [None]
